FAERS Safety Report 8637092 (Version 2)
Quarter: 2012Q4

REPORT INFORMATION
  Report Type: 
  Country: GB (occurrence: GB)
  Receive Date: 20120627
  Receipt Date: 20120910
  Transmission Date: 20130627
  Serious: Yes (Disabling)
  Sender: FDA-Public Use
  Company Number: PHHY2012GB053695

PATIENT
  Age: 83 Year
  Sex: Female
  Weight: 49.1 kg

DRUGS (4)
  1. ANASTROZOLE [Suspect]
     Dates: start: 20120308, end: 20120313
  2. CONOTRANE [Concomitant]
     Dates: start: 20120314, end: 20120411
  3. IBUPROFEN [Concomitant]
     Dates: start: 20120302, end: 20120330
  4. TAMOXIFEN [Concomitant]
     Dates: start: 20120329, end: 20120330

REACTIONS (1)
  - Suicidal ideation [Recovered/Resolved]
